FAERS Safety Report 25314581 (Version 1)
Quarter: 2025Q2

REPORT INFORMATION
  Report Type: Spontaneous
  Country: US (occurrence: None)
  Receive Date: 20250513
  Receipt Date: 20250513
  Transmission Date: 20250716
  Serious: Yes (Hospitalization)
  Sender: FDA-CTU
  Company Number: None

PATIENT
  Age: 22 Year
  Sex: Female
  Weight: 60 kg

DRUGS (4)
  1. MELOXICAM [Suspect]
     Active Substance: MELOXICAM
     Indication: Back pain
     Dosage: OTHER QUANTITY : 1 TABLET(S);?FREQUENCY : TWICE A DAY;?
     Route: 048
     Dates: start: 20250513, end: 20250513
  2. FLURBIPROFEN [Concomitant]
     Active Substance: FLURBIPROFEN
  3. IBUPROFEN [Concomitant]
     Active Substance: IBUPROFEN
  4. Ph;prpglucinol [Concomitant]

REACTIONS (3)
  - Rash [None]
  - Rash [None]
  - Swelling [None]

NARRATIVE: CASE EVENT DATE: 20250513
